FAERS Safety Report 5122658-4 (Version None)
Quarter: 2006Q4

REPORT INFORMATION
  Report Type: 
  Country: None (occurrence: None)
  Receive Date: 20061009
  Receipt Date: 20061002
  Transmission Date: 20070319
  Serious: Yes (Hospitalization, Other)
  Sender: FDA-Public Use
  Company Number: BR-BAYER-200614383GDS

PATIENT
  Age: 34 Year
  Sex: Female

DRUGS (2)
  1. ASPIRINA PREVENT [Suspect]
     Indication: HEADACHE
     Dosage: TOTAL DAILY DOSE: 100 MG  UNIT DOSE: 100 MG
     Route: 048
     Dates: start: 20060901, end: 20060915
  2. NATURETTI [Concomitant]
     Indication: CONSTIPATION
     Route: 048

REACTIONS (4)
  - ABDOMINAL DISTENSION [None]
  - ABDOMINAL PAIN [None]
  - DRUG EXPOSURE DURING PREGNANCY [None]
  - INTRA-UTERINE DEATH [None]
